FAERS Safety Report 10368245 (Version 1)
Quarter: 2014Q3

REPORT INFORMATION
  Report Type: Spontaneous
  Country: FR (occurrence: FR)
  Receive Date: 20140807
  Receipt Date: 20140807
  Transmission Date: 20150326
  Serious: Yes (Other)
  Sender: FDA-Public Use
  Company Number: FR-GILEAD-2014-0110772

PATIENT
  Age: 32 Year
  Sex: Male

DRUGS (2)
  1. ISENTRESS [Suspect]
     Active Substance: RALTEGRAVIR POTASSIUM
     Indication: HIV INFECTION
     Dosage: UNK
     Route: 048
     Dates: start: 20131028, end: 20140625
  2. TRUVADA [Suspect]
     Active Substance: EMTRICITABINE\TENOFOVIR DISOPROXIL FUMARATE
     Indication: HIV INFECTION
     Dosage: UNK
     Route: 048
     Dates: start: 20131028, end: 20140625

REACTIONS (2)
  - Abnormal weight gain [Not Recovered/Not Resolved]
  - Lipodystrophy acquired [Not Recovered/Not Resolved]

NARRATIVE: CASE EVENT DATE: 20140625
